FAERS Safety Report 6602131-4 (Version None)
Quarter: 2010Q1

REPORT INFORMATION
  Report Type: 
  Country: None (occurrence: None)
  Receive Date: 20100225
  Receipt Date: 20100222
  Transmission Date: 20100710
  Serious: Yes (Death, Hospitalization)
  Sender: FDA-Public Use
  Company Number: PHEH2009US15722

PATIENT
  Sex: Male
  Weight: 83 kg

DRUGS (12)
  1. EXJADE [Suspect]
     Indication: IRON OVERLOAD
     Dosage: 2000 MG, QD
     Route: 048
     Dates: start: 20080804, end: 20091105
  2. EXJADE [Suspect]
     Indication: MYELODYSPLASTIC SYNDROME
  3. PRILOSEC [Concomitant]
  4. JANUVIA [Concomitant]
  5. MUCINEX [Concomitant]
  6. ZOCOR [Concomitant]
  7. LASIX [Concomitant]
  8. MAGNESIUM [Concomitant]
  9. VITAMIN B COMPLEX CAP [Concomitant]
  10. CALCITRIOL [Concomitant]
  11. LANTUS [Concomitant]
  12. AMIODARONE [Concomitant]

REACTIONS (8)
  - ANAEMIA [None]
  - BLOOD UREA INCREASED [None]
  - CARDIAC FAILURE CONGESTIVE [None]
  - CHRONIC OBSTRUCTIVE PULMONARY DISEASE [None]
  - CORONARY ARTERY DISEASE [None]
  - DIABETES MELLITUS [None]
  - MALIGNANT NEOPLASM PROGRESSION [None]
  - RENAL FAILURE [None]
